FAERS Safety Report 16692143 (Version 6)
Quarter: 2020Q1

REPORT INFORMATION
  Report Type: Report from Study
  Country: CN (occurrence: CN)
  Receive Date: 20190812
  Receipt Date: 20200305
  Transmission Date: 20200409
  Serious: Yes (Hospitalization)
  Sender: FDA-Public Use
  Company Number: CN-BAYER-2019-127467

PATIENT
  Age: 65 Year
  Sex: Male
  Weight: 55 kg

DRUGS (58)
  1. COPANLISIB. [Suspect]
     Active Substance: COPANLISIB
     Indication: NON-HODGKIN^S LYMPHOMA RECURRENT
     Dosage: 45 MG, QD
     Route: 042
     Dates: start: 20190910, end: 20190910
  2. COPANLISIB. [Suspect]
     Active Substance: COPANLISIB
     Indication: NON-HODGKIN^S LYMPHOMA RECURRENT
     Dosage: 45 MG, QD
     Route: 042
     Dates: start: 20191016, end: 20191016
  3. TROPISETRON [Concomitant]
     Active Substance: TROPISETRON
     Indication: GASTROINTESTINAL DISORDER PROPHYLAXIS
     Dosage: 4 MG, BID
     Route: 042
     Dates: start: 20190813, end: 20190814
  4. MOXIFLOXACIN HYDROCHLORIDE. [Concomitant]
     Active Substance: MOXIFLOXACIN HYDROCHLORIDE
     Indication: PROPHYLAXIS
     Dosage: 0.4 G, QD
     Route: 048
     Dates: start: 20191013, end: 20191023
  5. DIPHENHYDRAMINE. [Concomitant]
     Active Substance: DIPHENHYDRAMINE
     Indication: PROPHYLAXIS
     Dosage: 40 MG, QD
     Route: 030
     Dates: start: 20190701, end: 20190701
  6. ALBUMIN PREPARED FROM HUMAN PLASMA [Concomitant]
     Indication: HYPOALBUMINAEMIA
     Dosage: 100 ML, QD
     Route: 042
     Dates: start: 20190708, end: 20190708
  7. COPANLISIB. [Suspect]
     Active Substance: COPANLISIB
     Indication: NON-HODGKIN^S LYMPHOMA RECURRENT
     Dosage: UNK
  8. FISH OIL [Concomitant]
     Active Substance: FISH OIL
     Indication: PROPHYLAXIS
     Dosage: 100 ML, QD
     Route: 042
     Dates: start: 20190730, end: 20190806
  9. OMEPRAZOLE. [Concomitant]
     Active Substance: OMEPRAZOLE
     Indication: GASTROINTESTINAL DISORDER PROPHYLAXIS
     Dosage: 40 MG, BID
     Route: 042
     Dates: start: 20190813, end: 20190814
  10. SODIUM CHLORIDE. [Concomitant]
     Active Substance: SODIUM CHLORIDE
     Indication: HYPONATRAEMIA
     Dosage: 60 MG, QD
     Route: 042
     Dates: start: 20190708, end: 20190708
  11. HUMAN IMMUNOGLOBULIN [Concomitant]
     Indication: PROPHYLAXIS
     Dosage: 5 G, QD
     Route: 042
     Dates: start: 20191031, end: 20191031
  12. TERFENADINE [Concomitant]
     Active Substance: TERFENADINE
     Indication: RASH
     Dosage: 60 MG, BID
     Route: 048
     Dates: start: 20190918, end: 20190925
  13. COPANLISIB. [Suspect]
     Active Substance: COPANLISIB
     Indication: NON-HODGKIN^S LYMPHOMA RECURRENT
     Dosage: 45 MG, QD
     Route: 042
     Dates: start: 20190827, end: 20190827
  14. COPANLISIB. [Suspect]
     Active Substance: COPANLISIB
     Indication: NON-HODGKIN^S LYMPHOMA RECURRENT
     Dosage: 45 MG, QD
     Route: 042
     Dates: start: 20190917, end: 20190917
  15. RITUXIMAB. [Suspect]
     Active Substance: RITUXIMAB
     Indication: NON-HODGKIN^S LYMPHOMA RECURRENT
     Dosage: 604 MG, QD
     Dates: start: 20190813, end: 20190813
  16. BENDAMUSTINE [Suspect]
     Active Substance: BENDAMUSTINE
     Indication: NON-HODGKIN^S LYMPHOMA RECURRENT
     Dosage: 145 MG, QD
     Route: 042
     Dates: start: 20190813, end: 20190813
  17. BENDAMUSTINE [Suspect]
     Active Substance: BENDAMUSTINE
     Indication: NON-HODGKIN^S LYMPHOMA RECURRENT
     Dosage: 145 MG, QD
     Route: 042
     Dates: start: 20190910, end: 20190910
  18. OMEPRAZOLE. [Concomitant]
     Active Substance: OMEPRAZOLE
     Indication: ANTIEMETIC SUPPORTIVE CARE
     Dosage: 40 MG, QD
     Route: 042
     Dates: start: 20190701, end: 20190712
  19. CELEBREX [Concomitant]
     Active Substance: CELECOXIB
     Indication: PROPHYLAXIS
     Dosage: 200 MG, QD
     Route: 048
     Dates: start: 20190701, end: 20190701
  20. BACLOFEN. [Concomitant]
     Active Substance: BACLOFEN
     Indication: PROPHYLAXIS
     Dosage: 10 MG, TID
     Route: 048
     Dates: end: 20190708
  21. BICARBONATE [Concomitant]
     Active Substance: SODIUM BICARBONATE
     Indication: PH URINE INCREASED
     Dosage: 60 ML, QD
     Route: 042
     Dates: start: 20190701, end: 20190708
  22. COPANLISIB. [Suspect]
     Active Substance: COPANLISIB
     Indication: NON-HODGKIN^S LYMPHOMA RECURRENT
     Dosage: 60 MG, QD
     Route: 042
     Dates: start: 20190716, end: 20190716
  23. COPANLISIB. [Suspect]
     Active Substance: COPANLISIB
     Indication: NON-HODGKIN^S LYMPHOMA RECURRENT
     Dosage: 45 MG, QD
     Route: 042
     Dates: start: 20190813, end: 20190813
  24. BENDAMUSTINE [Suspect]
     Active Substance: BENDAMUSTINE
     Indication: NON-HODGKIN^S LYMPHOMA RECURRENT
     Dosage: 152 MG, QD
     Route: 042
     Dates: start: 20190701, end: 20190701
  25. BENDAMUSTINE [Suspect]
     Active Substance: BENDAMUSTINE
     Indication: NON-HODGKIN^S LYMPHOMA RECURRENT
     Dosage: 145 MG, QD
     Route: 042
     Dates: start: 20190814, end: 20190814
  26. OMEPRAZOLE. [Concomitant]
     Active Substance: OMEPRAZOLE
     Indication: ANTIEMETIC SUPPORTIVE CARE
     Dosage: 40 MG, QD
     Route: 042
     Dates: start: 20190716, end: 20190716
  27. CELEBREX [Concomitant]
     Active Substance: CELECOXIB
     Indication: PROPHYLAXIS
     Dosage: 200 MG, QD
     Route: 048
     Dates: start: 20190910, end: 20190910
  28. MOXIFLOXACIN HYDROCHLORIDE. [Concomitant]
     Active Substance: MOXIFLOXACIN HYDROCHLORIDE
     Indication: PROPHYLAXIS
     Dosage: 0.4 G, QD
     Route: 048
     Dates: start: 20190722, end: 20190726
  29. DIPHENHYDRAMINE. [Concomitant]
     Active Substance: DIPHENHYDRAMINE
     Indication: PROPHYLAXIS
     Dosage: 40 MG, QD
     Route: 030
     Dates: start: 20190813, end: 20190813
  30. TORASEMIDE [Concomitant]
     Active Substance: TORSEMIDE
     Indication: POLYURIA
     Dosage: 20 MG, QD
     Route: 042
     Dates: start: 20190704, end: 20190704
  31. KABIVEN PI [Concomitant]
     Indication: PROPHYLAXIS
     Dosage: 1026 ML, QD
     Route: 040
     Dates: start: 20190701, end: 20190710
  32. ALBUMIN PREPARED FROM HUMAN PLASMA [Concomitant]
     Indication: HYPOALBUMINAEMIA
     Dosage: 100 ML, QD
     Route: 042
     Dates: start: 20190704, end: 20190706
  33. SODIUM CHLORIDE. [Concomitant]
     Active Substance: SODIUM CHLORIDE
     Indication: HYPONATRAEMIA
     Dosage: 50 MG, QD
     Route: 042
     Dates: start: 20190705, end: 20190705
  34. NIMESULIDE [Concomitant]
     Active Substance: NIMESULIDE
     Indication: NASOPHARYNGITIS
     Dosage: 100 MG, QD
     Route: 048
     Dates: start: 20191020, end: 20191022
  35. CHLORPHENAMINE MALEATE;DICLOFENAC SODIUM [Concomitant]
     Indication: NASOPHARYNGITIS
     Dosage: 1 DF, QD
     Route: 048
     Dates: start: 20191002, end: 20191003
  36. COPANLISIB. [Suspect]
     Active Substance: COPANLISIB
     Indication: NON-HODGKIN^S LYMPHOMA RECURRENT
     Dosage: 60 ML, QD
     Route: 042
     Dates: start: 20190730, end: 20190730
  37. COPANLISIB. [Suspect]
     Active Substance: COPANLISIB
     Indication: NON-HODGKIN^S LYMPHOMA RECURRENT
     Dosage: 45 MG, QD
     Route: 042
     Dates: start: 20190820, end: 20190820
  38. COPANLISIB. [Suspect]
     Active Substance: COPANLISIB
     Indication: NON-HODGKIN^S LYMPHOMA RECURRENT
     Dosage: UNK
  39. RITUXIMAB. [Suspect]
     Active Substance: RITUXIMAB
     Indication: NON-HODGKIN^S LYMPHOMA RECURRENT
     Dosage: 608 MG, QD
     Dates: start: 20191009, end: 20191009
  40. BENDAMUSTINE [Suspect]
     Active Substance: BENDAMUSTINE
     Indication: NON-HODGKIN^S LYMPHOMA RECURRENT
     Dosage: 145 MG, QD
     Route: 042
     Dates: start: 20190911, end: 20190911
  41. TROPISETRON [Concomitant]
     Active Substance: TROPISETRON
     Indication: ANTIEMETIC SUPPORTIVE CARE
     Dosage: 4 MG, BID
     Route: 042
     Dates: start: 20190910, end: 20190911
  42. DIPHENHYDRAMINE. [Concomitant]
     Active Substance: DIPHENHYDRAMINE
     Indication: PROPHYLAXIS
     Dosage: 40 MG, QD
     Route: 030
     Dates: start: 20190910, end: 20190910
  43. BICARBONATE [Concomitant]
     Active Substance: SODIUM BICARBONATE
     Indication: PH URINE INCREASED
     Dosage: 125 ML, QD, INTRAVASCULAR
     Dates: start: 20190701, end: 20190708
  44. RITUXIMAB. [Suspect]
     Active Substance: RITUXIMAB
     Indication: NON-HODGKIN^S LYMPHOMA RECURRENT
     Dosage: 630 MG, QD
     Route: 042
     Dates: start: 20190701, end: 20190701
  45. RITUXIMAB. [Suspect]
     Active Substance: RITUXIMAB
     Indication: NON-HODGKIN^S LYMPHOMA RECURRENT
     Dosage: 604 MG, QD
     Dates: start: 20190910, end: 20190910
  46. BENDAMUSTINE [Suspect]
     Active Substance: BENDAMUSTINE
     Indication: NON-HODGKIN^S LYMPHOMA RECURRENT
     Dosage: 152 MG, QD
     Route: 042
     Dates: start: 20190702, end: 20190702
  47. BENDAMUSTINE [Suspect]
     Active Substance: BENDAMUSTINE
     Indication: NON-HODGKIN^S LYMPHOMA RECURRENT
     Dosage: 146 MG, QD
     Route: 042
     Dates: start: 20191010, end: 20191010
  48. KABIVEN PI [Concomitant]
     Indication: PROPHYLAXIS
     Dosage: 1026 ML, QD
     Route: 042
     Dates: start: 20190730, end: 20190806
  49. COPANLISIB. [Suspect]
     Active Substance: COPANLISIB
     Indication: NON-HODGKIN^S LYMPHOMA RECURRENT
     Dosage: 60 MG, QD
     Route: 042
     Dates: start: 20190701, end: 20190701
  50. COPANLISIB. [Suspect]
     Active Substance: COPANLISIB
     Indication: NON-HODGKIN^S LYMPHOMA RECURRENT
     Dosage: 45 MG, QD
     Route: 042
     Dates: start: 20190924, end: 20190924
  51. COPANLISIB. [Suspect]
     Active Substance: COPANLISIB
     Indication: NON-HODGKIN^S LYMPHOMA RECURRENT
     Dosage: 45 MG, QD
     Route: 042
     Dates: start: 20191009, end: 20191009
  52. BENDAMUSTINE [Suspect]
     Active Substance: BENDAMUSTINE
     Indication: NON-HODGKIN^S LYMPHOMA RECURRENT
     Dosage: 146 MG, QD
     Route: 042
     Dates: start: 20191009, end: 20191009
  53. OMEPRAZOLE. [Concomitant]
     Active Substance: OMEPRAZOLE
     Indication: ANTIEMETIC SUPPORTIVE CARE
     Dosage: 40 MG, BID, INTRAVASCULAR
     Dates: start: 20190910, end: 20190911
  54. TROPISETRON [Concomitant]
     Active Substance: TROPISETRON
     Indication: ANTIEMETIC SUPPORTIVE CARE
     Dosage: 4 MG, QD
     Route: 042
     Dates: start: 20190702, end: 20190702
  55. CELEBREX [Concomitant]
     Active Substance: CELECOXIB
     Indication: PROPHYLAXIS
     Dosage: 200 MG, QD
     Route: 048
     Dates: start: 20190813, end: 20190813
  56. BACLOFEN. [Concomitant]
     Active Substance: BACLOFEN
     Indication: MUSCLE SPASMS
     Dosage: 10 MG, QD
     Route: 048
     Dates: start: 20190705, end: 20190708
  57. MUCOPOLYSACCHARIDE POLYSULFATE [Concomitant]
     Indication: PROPHYLAXIS
     Dosage: 0.5 G, QD
     Dates: start: 20190701, end: 20190701
  58. MOMETASONE FUROATE. [Concomitant]
     Active Substance: MOMETASONE FUROATE
     Indication: RASH
     Dosage: 0.5 G
     Route: 061
     Dates: start: 20190909, end: 20191007

REACTIONS (5)
  - Neutrophil count decreased [Recovered/Resolved]
  - Pneumonia [Recovered/Resolved]
  - Pneumonia [Recovered/Resolved]
  - Pneumonia [Recovered/Resolved]
  - Bone marrow failure [Recovered/Resolved]

NARRATIVE: CASE EVENT DATE: 20190704
